FAERS Safety Report 7969284-7 (Version None)
Quarter: 2011Q4

REPORT INFORMATION
  Report Type: 
  Country: None (occurrence: None)
  Receive Date: 20111209
  Receipt Date: 20111205
  Transmission Date: 20120403
  Serious: Yes (Hospitalization, Other)
  Sender: FDA-Public Use
  Company Number: US-ROCHE-1015881

PATIENT
  Sex: Female
  Weight: 111.4 kg

DRUGS (22)
  1. GABAPENTIN [Concomitant]
     Route: 048
  2. LISINOPRIL AND HYDROCHLOROTHIAZIDE [Concomitant]
     Dosage: 20/25MG
  3. LEVOTHYROXINE SODIUM [Concomitant]
  4. AVASTIN [Suspect]
     Indication: MALIGNANT MELANOMA
     Dosage: Q3 WEEKS CONTINUOUS
     Route: 042
     Dates: start: 20110914, end: 20111029
  5. CALCIUM CARBONATE/VITAMIN D NOS [Concomitant]
     Dosage: CALCIUM CARBONATE/VIT D 1500 MG/200IU(600 MG ELEM CA)
     Route: 048
  6. COLACE [Concomitant]
     Route: 048
  7. MULTI-VITAMINS [Concomitant]
     Route: 048
  8. VERAPAMIL EXTENDED-RELEASE [Concomitant]
     Route: 048
  9. ACETAMINOPHEN W/ CODEINE [Concomitant]
     Dosage: PRN
     Route: 048
  10. HYDROCORTISONE [Concomitant]
     Dosage: 120 TABLETS
     Route: 048
  11. SERTRALINE HYDROCHLORIDE [Concomitant]
     Route: 048
  12. PROCHLORPERAZINE MALEATE [Concomitant]
     Indication: NAUSEA
     Dosage: PRN NAUSEA
     Route: 048
  13. OXYCODONE HCL [Concomitant]
     Dosage: PRN
     Route: 048
  14. TRIAMCINOLONE [Concomitant]
     Dosage: 0.5% APPLICATION TO AFFECTED AREAS ONLY
  15. EXTRA STRENGTH TYLENOL [Concomitant]
     Dosage: PRN
     Route: 048
  16. IPILIMUMAB [Suspect]
     Indication: MALIGNANT MELANOMA
     Dosage: Q3 WK X 4 THEN Q12 WEEK
     Dates: start: 20110914, end: 20111029
  17. ALPRAZOLAM [Concomitant]
     Dosage: PRN
     Route: 048
  18. CLONAZEPAM [Concomitant]
     Route: 048
  19. LIDOCAINE OINTMENT [Concomitant]
  20. VITAMIN D [Concomitant]
     Dosage: 1000 UNITS Q24H
     Route: 048
  21. HYDROCORTISONE [Concomitant]
     Dosage: 40 MG IN MORNING AND 20 MG IN EVENING
  22. LIDOCAINE - PRILOCAIN CREAM [Concomitant]
     Dosage: 1 APPLICATION TOP X1 TUBE

REACTIONS (3)
  - DIARRHOEA [None]
  - HYPOPHYSITIS [None]
  - ADRENAL INSUFFICIENCY [None]
